FAERS Safety Report 9791328 (Version 1)
Quarter: 2014Q1

REPORT INFORMATION
  Report Type: Spontaneous
  Country: JP (occurrence: JP)
  Receive Date: 20140101
  Receipt Date: 20140101
  Transmission Date: 20141002
  Serious: Yes (Other)
  Sender: FDA-Public Use
  Company Number: JP-009507513-1312JPN011487

PATIENT
  Sex: Female

DRUGS (2)
  1. FOSAMAC TABLETS 35MG [Suspect]
     Dosage: UNK
     Route: 048
  2. FOSAMAC TABLETS 35MG [Suspect]
     Dosage: 35 MG (1 TABLET), UNK
     Route: 048
     Dates: start: 20131220

REACTIONS (2)
  - Thoracic operation [Unknown]
  - Pain in extremity [Unknown]
